FAERS Safety Report 15273167 (Version 1)
Quarter: 2018Q3

REPORT INFORMATION
  Report Type: Spontaneous
  Country: BE (occurrence: BE)
  Receive Date: 20180813
  Receipt Date: 20180813
  Transmission Date: 20181010
  Serious: Yes (Hospitalization)
  Sender: FDA-Public Use
  Company Number: BE-ELI_LILLY_AND_COMPANY-BE201808001522

PATIENT
  Age: 56 Year
  Sex: Female
  Weight: 67 kg

DRUGS (9)
  1. CISPLATIN. [Concomitant]
     Active Substance: CISPLATIN
     Indication: METASTATIC NEOPLASM
     Dosage: 45 MG, DAILY
     Route: 042
     Dates: start: 20120818, end: 20120904
  2. CALCIUM + VITAMIN D                /09279801/ [Concomitant]
     Active Substance: CALCIUM\CHOLECALCIFEROL
     Indication: OSTEOPOROSIS
     Dosage: UNK
     Route: 048
  3. EUTHYROX [Concomitant]
     Active Substance: LEVOTHYROXINE SODIUM
     Indication: HYPOTHYROIDISM
     Dosage: 125 UG, DAILY
     Route: 065
  4. GEMCITABINE HYDROCHLORIDE. [Suspect]
     Active Substance: GEMCITABINE HYDROCHLORIDE
     Indication: METASTATIC NEOPLASM
     Dosage: 1300 MG, OTHER
     Route: 042
     Dates: start: 20120904, end: 20120904
  5. MS DIRECT [Concomitant]
     Active Substance: MORPHINE SULFATE
     Indication: PAIN
     Dosage: SI BESOIN
     Route: 048
  6. CORTISONE [Concomitant]
     Active Substance: CORTISONE\HYDROCORTISONE
     Indication: PAIN
     Dosage: 5 MG, DAILY
     Route: 065
  7. XGEVA [Concomitant]
     Active Substance: DENOSUMAB
     Dosage: 1 DF, MONTHLY (1/M)
     Route: 065
     Dates: start: 20120813
  8. MS CONTIN [Concomitant]
     Active Substance: MORPHINE SULFATE
     Indication: PAIN
     Dosage: 10 MG, DAILY
     Route: 048
  9. CISPLATIN. [Concomitant]
     Active Substance: CISPLATIN
     Indication: METASTATIC NEOPLASM
     Dosage: 55 MG, DAILY
     Route: 042
     Dates: start: 20120818, end: 20120904

REACTIONS (5)
  - Pruritus [Recovered/Resolved]
  - Sense of oppression [Recovered/Resolved]
  - Paraesthesia [Recovered/Resolved]
  - Chest pain [Recovered/Resolved]
  - Rash [Recovered/Resolved]

NARRATIVE: CASE EVENT DATE: 20120904
